FAERS Safety Report 4540937-6 (Version None)
Quarter: 2004Q4

REPORT INFORMATION
  Report Type: 
  Country: None (occurrence: None)
  Receive Date: 20041229
  Receipt Date: 20041214
  Transmission Date: 20050328
  Serious: Yes (Other)
  Sender: FDA-Public Use
  Company Number: CH-GLAXOSMITHKLINE-B0362573A

PATIENT
  Age: 79 Year
  Sex: Male

DRUGS (7)
  1. IMUREK [Suspect]
     Route: 048
     Dates: start: 20040505
  2. DILATREND [Suspect]
     Dosage: 12.5MG TWICE PER DAY
     Route: 048
  3. CO-ENATEC [Suspect]
     Indication: ESSENTIAL HYPERTENSION
     Dosage: 20MG TWICE PER DAY
     Route: 048
  4. THROMBACE NEO [Concomitant]
     Dosage: 100MG PER DAY
     Route: 048
  5. MESTINON [Concomitant]
     Dosage: 60MG THREE TIMES PER DAY
     Route: 048
     Dates: start: 20040315
  6. PREDNISONE [Concomitant]
     Dosage: 10MG PER DAY
     Route: 048
     Dates: start: 20040315
  7. CALPEROS [Concomitant]
     Dosage: 1LOZ PER DAY
     Route: 048

REACTIONS (5)
  - ALANINE AMINOTRANSFERASE INCREASED [None]
  - ASPARTATE AMINOTRANSFERASE INCREASED [None]
  - BLOOD ALKALINE PHOSPHATASE INCREASED [None]
  - GAMMA-GLUTAMYLTRANSFERASE INCREASED [None]
  - LIVER FUNCTION TEST ABNORMAL [None]
